FAERS Safety Report 16719821 (Version 1)
Quarter: 2019Q4

REPORT INFORMATION
  Report Type: Spontaneous
  Country: US (occurrence: US)
  Receive Date: 20190819
  Receipt Date: 20190819
  Transmission Date: 20200122
  Serious: No
  Sender: FDA-Public Use
  Company Number: None

PATIENT
  Age: 31 Year
  Sex: Female
  Weight: 110.25 kg

DRUGS (5)
  1. EQUATE NAPROXEN SODIUM [Concomitant]
     Active Substance: NAPROXEN SODIUM
  2. POTASSIUM 99MG [Concomitant]
  3. EQUATE COOL AND HEAT PAIN RELIEVING LIQUID [Suspect]
     Active Substance: MENTHOL
     Indication: ARTHRALGIA
     Dosage: ?          OTHER FREQUENCY:NO MORE THAN 3 OR;?
     Route: 061
     Dates: start: 20190819, end: 20190819
  4. EQUATE COOL AND HEAT PAIN RELIEVING LIQUID [Suspect]
     Active Substance: MENTHOL
     Indication: MYALGIA
     Dosage: ?          OTHER FREQUENCY:NO MORE THAN 3 OR;?
     Route: 061
     Dates: start: 20190819, end: 20190819
  5. VITAMIN [Concomitant]
     Active Substance: VITAMINS

REACTIONS (3)
  - Application site erythema [None]
  - Application site pain [None]
  - Application site burn [None]

NARRATIVE: CASE EVENT DATE: 20190819
